FAERS Safety Report 7802976-9 (Version None)
Quarter: 2011Q4

REPORT INFORMATION
  Report Type: 
  Country: None (occurrence: None)
  Receive Date: 20111007
  Receipt Date: 20111004
  Transmission Date: 20120403
  Serious: Yes (Hospitalization, Disabling, Other)
  Sender: FDA-Public Use
  Company Number: CA-ABBOTT-11P-028-0849221-00

PATIENT
  Sex: Female
  Weight: 86.26 kg

DRUGS (9)
  1. TRIQUILAR [Concomitant]
     Indication: CONTRACEPTION
     Route: 048
     Dates: start: 20100101
  2. HUMIRA [Suspect]
     Indication: CROHN'S DISEASE
     Route: 058
     Dates: start: 20090921
  3. APO-METRAZAPINE [Concomitant]
     Indication: PROPHYLAXIS
     Route: 048
  4. VENLAFAXINE [Concomitant]
     Indication: DEPRESSION
     Route: 048
     Dates: start: 20090101
  5. SYNTHROID [Concomitant]
     Indication: THYROID DISORDER
     Route: 048
     Dates: start: 20090101
  6. CESAMET [Concomitant]
     Indication: CROHN'S DISEASE
     Route: 048
  7. ELAVIL [Concomitant]
     Indication: DEPRESSION
     Route: 048
     Dates: start: 20060101
  8. ONLAZAPINE [Concomitant]
     Indication: PROPHYLAXIS
     Route: 048
  9. TRAMADOL HYDROCHLORIDE/ACETAMINOPHEN [Concomitant]
     Indication: CROHN'S DISEASE

REACTIONS (5)
  - INCISION SITE INFECTION [None]
  - FISTULA [None]
  - INTESTINAL STENOSIS [None]
  - INTESTINAL OBSTRUCTION [None]
  - NEURALGIA [None]
